FAERS Safety Report 25731418 (Version 2)
Quarter: 2025Q3

REPORT INFORMATION
  Report Type: Spontaneous
  Country: GB (occurrence: GB)
  Receive Date: 20250827
  Receipt Date: 20250910
  Transmission Date: 20251021
  Serious: Yes (Other)
  Sender: MYLAN
  Company Number: GB-MYLANLABS-2025M1071291

PATIENT
  Age: 78 Year
  Sex: Male
  Weight: 79.6 kg

DRUGS (5)
  1. CLOZARIL [Suspect]
     Active Substance: CLOZAPINE
     Indication: Schizophrenia
     Dosage: 100 MILLIGRAM, BID (BD, TWICE DAILY)
     Dates: start: 20130703
  2. PROCYCLIDINE [Concomitant]
     Active Substance: PROCYCLIDINE
     Dosage: 2.5 MILLIGRAM, BID (BD, TWICE DAILY)
  3. BISOPROLOL [Concomitant]
     Active Substance: BISOPROLOL
     Dosage: 7.5 MILLIGRAM, QD (DAILY)
  4. APIXABAN [Concomitant]
     Active Substance: APIXABAN
     Dosage: 5 MILLIGRAM, BID (BD, TWICE DAILY)
  5. CLONAZEPAM [Concomitant]
     Active Substance: CLONAZEPAM
     Dosage: 0.5 MILLIGRAM, AM (IN MORNING)

REACTIONS (3)
  - Thrombocytopenia [Unknown]
  - Stomatocytes present [Unknown]
  - Liver disorder [Unknown]

NARRATIVE: CASE EVENT DATE: 20250819
